FAERS Safety Report 23683385 (Version 2)
Quarter: 2024Q1

REPORT INFORMATION
  Report Type: Other
  Country: CN (occurrence: CN)
  Receive Date: 20240328
  Receipt Date: 20240331
  Transmission Date: 20240410
  Serious: Yes (Life-Threatening, Hospitalization, Other)
  Sender: FDA-Public Use
  Company Number: CN-DEXPHARM-2024-0662

PATIENT
  Age: 66 Year
  Sex: Male
  Weight: 47.5 kg

DRUGS (9)
  1. METHOTREXATE [Interacting]
     Active Substance: METHOTREXATE
     Indication: Rheumatoid arthritis
     Dosage: 10 MG/W
  2. OMEPRAZOLE [Interacting]
     Active Substance: OMEPRAZOLE
     Indication: Stress ulcer
  3. PANTOPRAZOLE [Interacting]
     Active Substance: PANTOPRAZOLE
     Indication: Stress ulcer
  4. RABEPRAZOLE [Interacting]
     Active Substance: RABEPRAZOLE
     Indication: Stress ulcer
  5. Yixuesheng [Concomitant]
     Indication: Anaemia
  6. LEUCOGEN [Concomitant]
     Active Substance: LEUCOGEN
     Indication: White blood cell count decreased
  7. MEROPENEM [Interacting]
     Active Substance: MEROPENEM
     Indication: Antibiotic therapy
  8. CEPHALOTHIN [Interacting]
     Active Substance: CEPHALOTHIN
     Indication: Antibiotic therapy
  9. DEXKETOPROFEN [Suspect]
     Active Substance: DEXKETOPROFEN
     Indication: Arthralgia

REACTIONS (4)
  - Drug level increased [Recovered/Resolved]
  - Drug interaction [Recovered/Resolved]
  - Myelosuppression [Recovered/Resolved]
  - Anaemia [Recovered/Resolved]
